FAERS Safety Report 20581705 (Version 5)
Quarter: 2023Q2

REPORT INFORMATION
  Report Type: Other
  Country: CA (occurrence: None)
  Receive Date: 20220311
  Receipt Date: 20230515
  Transmission Date: 20230721
  Serious: Yes (Other)
  Sender: FDA-Public Use
  Company Number: CA-ROCHE-2606479

PATIENT
  Age: 54 Year
  Sex: Male

DRUGS (6)
  1. OCREVUS [Suspect]
     Active Substance: OCRELIZUMAB
     Indication: Primary progressive multiple sclerosis
     Dosage: 300 MG AT DAY 0 AND 14, THEN 600 MG EVERY 6 MONTH
     Route: 042
     Dates: start: 20181017
  2. OCREVUS [Suspect]
     Active Substance: OCRELIZUMAB
     Route: 042
  3. INSULIN NOS [Concomitant]
     Active Substance: INSULIN NOS
     Route: 065
  4. DALFAMPRIDINE [Concomitant]
     Active Substance: DALFAMPRIDINE
  5. BENADRYL [Concomitant]
     Active Substance: DIPHENHYDRAMINE HYDROCHLORIDE
  6. CLARITIN [Concomitant]
     Active Substance: LORATADINE

REACTIONS (17)
  - Cough [Recovering/Resolving]
  - Hypersensitivity [Not Recovered/Not Resolved]
  - Periorbital swelling [Recovered/Resolved]
  - Urticaria [Recovered/Resolved]
  - Heart rate irregular [Not Recovered/Not Resolved]
  - Oropharyngeal pain [Not Recovered/Not Resolved]
  - Ear infection [Unknown]
  - Arrhythmia [Unknown]
  - Incorrect drug administration rate [Unknown]
  - Mobility decreased [Not Recovered/Not Resolved]
  - Nasal congestion [Not Recovered/Not Resolved]
  - Asthenia [Unknown]
  - SARS-CoV-2 test positive [Not Recovered/Not Resolved]
  - Eyelid irritation [Recovered/Resolved]
  - Erythema of eyelid [Recovered/Resolved]
  - Oropharyngeal pain [Recovered/Resolved]
  - Joint stiffness [Not Recovered/Not Resolved]

NARRATIVE: CASE EVENT DATE: 20220225
